FAERS Safety Report 26004765 (Version 1)
Quarter: 2025Q4

REPORT INFORMATION
  Report Type: Spontaneous
  Country: GB (occurrence: GB)
  Receive Date: 20251106
  Receipt Date: 20251106
  Transmission Date: 20260118
  Serious: Yes (Other)
  Sender: BAXTER
  Company Number: None

PATIENT
  Age: 75 Year
  Sex: Female
  Weight: 141 kg

DRUGS (1)
  1. FUROSEMIDE [Suspect]
     Active Substance: FUROSEMIDE
     Indication: Oedema
     Dosage: 20 MG, DEPENDENT ON AMOUNT OF EDEMA
     Route: 065
     Dates: start: 20240428

REACTIONS (1)
  - Muscular weakness [Not Recovered/Not Resolved]
